FAERS Safety Report 23192408 (Version 1)
Quarter: 2023Q4

REPORT INFORMATION
  Report Type: Spontaneous
  Country: US (occurrence: None)
  Receive Date: 20231115
  Receipt Date: 20231115
  Transmission Date: 20240110
  Serious: Yes (Death, Life-Threatening)
  Sender: FDA-Public Use
  Company Number: None

PATIENT
  Age: 11 Year
  Sex: Female
  Weight: 35.7 kg

DRUGS (6)
  1. CALASPARGASE PEGOL [Suspect]
     Active Substance: CALASPARGASE PEGOL
     Indication: B-cell type acute leukaemia
     Dosage: OTHER QUANTITY : 2925 UNK;?FREQUENCY : ONCE;?
     Route: 042
     Dates: start: 20230702, end: 20230919
  2. VINCRISTINE [Concomitant]
     Active Substance: VINCRISTINE
  3. PREDNISONE [Concomitant]
     Active Substance: PREDNISONE
  4. INTRATHECAL CYTARABINE [Concomitant]
  5. DAUNORUBICIN [Concomitant]
     Active Substance: DAUNORUBICIN
  6. METHOTREXATE [Concomitant]
     Active Substance: METHOTREXATE

REACTIONS (2)
  - Pulmonary embolism [None]
  - Thrombosis [None]

NARRATIVE: CASE EVENT DATE: 20230713
